FAERS Safety Report 8792498 (Version 2)
Quarter: 2015Q2

REPORT INFORMATION
  Report Type: Report from Study
  Country: US (occurrence: US)
  Receive Date: 20120918
  Receipt Date: 20150401
  Transmission Date: 20150821
  Serious: Yes (Death, Other)
  Sender: FDA-Public Use
  Company Number: US-ROCHE-1127931

PATIENT
  Age: 47 Year
  Sex: Female

DRUGS (13)
  1. PROTONIX (UNITED STATES) [Concomitant]
  2. HERCEPTIN [Suspect]
     Active Substance: TRASTUZUMAB
     Indication: BREAST CANCER FEMALE
     Route: 042
  3. XELODA [Suspect]
     Active Substance: CAPECITABINE
     Indication: BREAST CANCER FEMALE
     Route: 065
  4. 5-FLUOROURACIL [Concomitant]
     Active Substance: FLUOROURACIL
  5. PERCOCET [Concomitant]
     Active Substance: ACETAMINOPHEN\OXYCODONE HYDROCHLORIDE
  6. ZOMETA [Concomitant]
     Active Substance: ZOLEDRONIC ACID
  7. COMPAZINE [Concomitant]
     Active Substance: PROCHLORPERAZINE MALEATE
  8. CYCLOPHOSPHAMIDE. [Concomitant]
     Active Substance: CYCLOPHOSPHAMIDE
  9. TAXOTERE [Concomitant]
     Active Substance: DOCETAXEL
  10. AVASTIN [Suspect]
     Active Substance: BEVACIZUMAB
     Indication: BREAST CANCER FEMALE
     Route: 042
  11. CYTOXAN [Concomitant]
     Active Substance: CYCLOPHOSPHAMIDE
  12. METHOTREXATE [Concomitant]
     Active Substance: METHOTREXATE
  13. GEMZAR [Concomitant]
     Active Substance: GEMCITABINE HYDROCHLORIDE

REACTIONS (28)
  - Death [Fatal]
  - Oropharyngeal pain [Unknown]
  - Chills [Unknown]
  - Headache [Unknown]
  - Arthralgia [Unknown]
  - Off label use [Unknown]
  - Diarrhoea [Unknown]
  - Decreased appetite [Unknown]
  - Memory impairment [Unknown]
  - Dyspnoea [Unknown]
  - Paraesthesia [Unknown]
  - Disease progression [Unknown]
  - Hot flush [Unknown]
  - Joint swelling [Unknown]
  - Pain in extremity [Unknown]
  - Lymphoedema [Unknown]
  - Atrioventricular block [Unknown]
  - Nausea [Unknown]
  - Anxiety [Unknown]
  - Cardiac murmur [Unknown]
  - Fatigue [Unknown]
  - Vomiting [Unknown]
  - Chest pain [Unknown]
  - Eye irritation [Unknown]
  - Myalgia [Unknown]
  - Depression [Unknown]
  - Confusional state [Unknown]
  - Amnesia [Unknown]

NARRATIVE: CASE EVENT DATE: 20051029
